FAERS Safety Report 6249719-0 (Version None)
Quarter: 2009Q2

REPORT INFORMATION
  Report Type: 
  Country: None (occurrence: None)
  Receive Date: 20090624
  Receipt Date: 20090609
  Transmission Date: 20091009
  Serious: Yes (Hospitalization)
  Sender: FDA-Public Use
  Company Number: 2009AL003932

PATIENT
  Age: 36 Year
  Sex: Female

DRUGS (14)
  1. DIAZEPAM [Suspect]
     Dosage: PRN
  2. LACTULOSE ORAL SO [Suspect]
     Dosage: 10 ML
  3. FERROUS SULFATE DROPS (ALPHARMA) [Suspect]
     Dosage: 200 MG;BID;PO
     Route: 048
  4. PERINDOPRIL [Concomitant]
  5. CLOZARIL [Concomitant]
  6. LANSOPRAZOLE [Concomitant]
  7. FOLIC ACID [Concomitant]
  8. TRIMETHOPRIM [Concomitant]
  9. ZOPICLONE [Concomitant]
  10. FUROSEMIDE [Concomitant]
  11. RAMIPRIL [Concomitant]
  12. ATORVASTATIN CALCIUM [Concomitant]
  13. BENDROFLUMETHIAZIDE [Concomitant]
  14. ARIPIPRAZOLE [Concomitant]

REACTIONS (15)
  - ABDOMINAL TENDERNESS [None]
  - BLOOD CULTURE POSITIVE [None]
  - CARDIAC MURMUR [None]
  - CONSTIPATION [None]
  - DIABETES MELLITUS [None]
  - DRUG INEFFECTIVE [None]
  - MALAISE [None]
  - NEUTROPHIL COUNT INCREASED [None]
  - PRODUCT CONTAMINATION [None]
  - PYREXIA [None]
  - SINUS TACHYCARDIA [None]
  - STAPHYLOCOCCAL INFECTION [None]
  - TREATMENT NONCOMPLIANCE [None]
  - URINARY TRACT INFECTION [None]
  - WHITE BLOOD CELL COUNT INCREASED [None]
